FAERS Safety Report 17955519 (Version 1)
Quarter: 2020Q2

REPORT INFORMATION
  Report Type: Report from Study
  Country: CA (occurrence: CA)
  Receive Date: 20200629
  Receipt Date: 20200629
  Transmission Date: 20200714
  Serious: Yes (Other)
  Sender: FDA-Public Use
  Company Number: NVSC2020CA182475

PATIENT
  Sex: Female

DRUGS (1)
  1. DICLOFENAC [Suspect]
     Active Substance: DICLOFENAC
     Indication: PRODUCT USED FOR UNKNOWN INDICATION
     Dosage: 50 MG
     Route: 048

REACTIONS (9)
  - Therapy partial responder [Unknown]
  - Back pain [Not Recovered/Not Resolved]
  - Psoriatic arthropathy [Unknown]
  - Thrombophlebitis superficial [Unknown]
  - Arthralgia [Not Recovered/Not Resolved]
  - Spondyloarthropathy [Recovering/Resolving]
  - Enthesopathy [Unknown]
  - Psoriasis [Unknown]
  - HLA-B*27 positive [Unknown]
